FAERS Safety Report 9465694 (Version 1)
Quarter: 2013Q3

REPORT INFORMATION
  Report Type: Report from Study
  Country: CA (occurrence: CA)
  Receive Date: 20130820
  Receipt Date: 20130820
  Transmission Date: 20140515
  Serious: Yes (Other)
  Sender: FDA-Public Use
  Company Number: CA-JNJFOC-20130807617

PATIENT
  Age: 58 Year
  Sex: Female
  Weight: 89 kg

DRUGS (15)
  1. REMICADE [Suspect]
     Indication: RHEUMATOID ARTHRITIS
     Dosage: DOSE INTERVAL: 6 TO 7 WEEKS.
     Route: 042
     Dates: start: 20070529
  2. SALOFALK [Concomitant]
     Route: 065
  3. HUMALOG [Concomitant]
     Route: 065
  4. INSULIN [Concomitant]
     Route: 065
  5. ECASA [Concomitant]
     Route: 065
  6. ARAVA [Concomitant]
     Route: 065
  7. PANTOLOC [Concomitant]
     Route: 065
  8. NOVOSPIROTON [Concomitant]
     Route: 065
  9. ELTROXIN [Concomitant]
     Route: 065
  10. FLUOXETIN [Concomitant]
     Route: 065
  11. RAMIPRIL [Concomitant]
     Route: 065
  12. NORVASC (AMLODIPINE BESILATE) [Concomitant]
     Route: 065
  13. MELOXICAM [Concomitant]
     Route: 065
  14. AVAPRO [Concomitant]
     Route: 065
  15. SULPHA [Concomitant]
     Route: 065

REACTIONS (2)
  - Fall [Not Recovered/Not Resolved]
  - Wrist fracture [Not Recovered/Not Resolved]
